FAERS Safety Report 9016756 (Version 1)
Quarter: 2013Q1

REPORT INFORMATION
  Report Type: Spontaneous
  Country: US (occurrence: US)
  Receive Date: 20130116
  Receipt Date: 20130116
  Transmission Date: 20140127
  Serious: No
  Sender: FDA-Public Use
  Company Number: US-PFIZER INC-2013018618

PATIENT
  Age: 45 Year
  Sex: Female
  Weight: 72.56 kg

DRUGS (1)
  1. GABAPENTIN [Suspect]
     Dosage: 300 MG, 3X/DAY
     Route: 048

REACTIONS (2)
  - Weight increased [Unknown]
  - Fatigue [Unknown]
